FAERS Safety Report 10541253 (Version 4)
Quarter: 2014Q4

REPORT INFORMATION
  Report Type: Report from Study
  Country: MX (occurrence: MX)
  Receive Date: 20141024
  Receipt Date: 20141121
  Transmission Date: 20150529
  Serious: Yes (Hospitalization)
  Sender: FDA-Public Use
  Company Number: MX-GLAXOSMITHKLINE-MX2014GSK007556

PATIENT
  Age: 29 Year
  Sex: Male
  Weight: 58.5 kg

DRUGS (3)
  1. LEVETIRACETAM. [Concomitant]
     Active Substance: LEVETIRACETAM
     Indication: EPILEPSY
     Dosage: 1500 MG, BID
     Route: 048
     Dates: start: 20120731
  2. OXCARBAZEPINE. [Concomitant]
     Active Substance: OXCARBAZEPINE
     Indication: EPILEPSY
     Dosage: 600 MG, TID
     Route: 048
     Dates: start: 200606
  3. RETIGABINE [Suspect]
     Active Substance: EZOGABINE
     Indication: EPILEPSY
     Dosage: 300 MG, TID
     Dates: start: 20070426

REACTIONS (1)
  - Urinary tract infection [Recovered/Resolved]

NARRATIVE: CASE EVENT DATE: 20141004
